FAERS Safety Report 19892926 (Version 2)
Quarter: 2021Q4

REPORT INFORMATION
  Report Type: Report from Study
  Country: CA (occurrence: CA)
  Receive Date: 20210928
  Receipt Date: 20211026
  Transmission Date: 20220303
  Serious: Yes (Other)
  Sender: FDA-Public Use
  Company Number: CA-JNJFOC-20210334451

PATIENT
  Sex: Female

DRUGS (17)
  1. MACITENTAN [Suspect]
     Active Substance: MACITENTAN
     Indication: Pulmonary hypertension
     Route: 048
     Dates: start: 20200801, end: 20210808
  2. MACITENTAN [Suspect]
     Active Substance: MACITENTAN
     Route: 048
     Dates: end: 20210926
  3. ADCIRCA [Suspect]
     Active Substance: TADALAFIL
     Indication: Product used for unknown indication
     Route: 065
     Dates: end: 20210926
  4. PREDNISONE [Concomitant]
     Active Substance: PREDNISONE
  5. VENTOLIN [Concomitant]
     Active Substance: ALBUTEROL SULFATE
  6. DULERA [Concomitant]
     Active Substance: FORMOTEROL FUMARATE DIHYDRATE\MOMETASONE FUROATE
  7. UMECLIDINIUM BROMIDE [Concomitant]
     Active Substance: UMECLIDINIUM BROMIDE
  8. CRESTOR [Concomitant]
     Active Substance: ROSUVASTATIN CALCIUM
  9. ERGOCALCIFEROL [Concomitant]
     Active Substance: ERGOCALCIFEROL
  10. CITALOPRAM [Concomitant]
     Active Substance: CITALOPRAM HYDROBROMIDE
  11. OXAZEPAM [Concomitant]
     Active Substance: OXAZEPAM
  12. SYNTHROID [Concomitant]
     Active Substance: LEVOTHYROXINE SODIUM
  13. BETAHISTINE HYDROCHLORIDE [Concomitant]
     Active Substance: BETAHISTINE HYDROCHLORIDE
  14. CALCIUM\CHOLECALCIFEROL [Concomitant]
     Active Substance: CALCIUM\CHOLECALCIFEROL
  15. INDAPAMIDE\PERINDOPRIL ARGININE [Concomitant]
     Active Substance: INDAPAMIDE\PERINDOPRIL ARGININE
  16. OXYGEN [Concomitant]
     Active Substance: OXYGEN
     Dosage: 1.5 TO 2.5 LITERS
  17. DULERA [Concomitant]
     Active Substance: FORMOTEROL FUMARATE DIHYDRATE\MOMETASONE FUROATE

REACTIONS (4)
  - Pain in extremity [Recovered/Resolved]
  - Drug ineffective [Unknown]
  - Joint swelling [Recovered/Resolved]
  - Dyspnoea [Unknown]

NARRATIVE: CASE EVENT DATE: 20210101
